FAERS Safety Report 25776500 (Version 1)
Quarter: 2025Q3

REPORT INFORMATION
  Report Type: Spontaneous
  Country: US (occurrence: US)
  Receive Date: 20250909
  Receipt Date: 20250909
  Transmission Date: 20251021
  Serious: No
  Sender: DOMPE FARMACEUTICI
  Company Number: US-FARMAPROD-202503-0707

PATIENT
  Sex: Male
  Weight: 106.14 kg

DRUGS (34)
  1. OXERVATE [Suspect]
     Active Substance: CENEGERMIN-BKBJ
     Indication: Neurotrophic keratopathy
     Route: 047
     Dates: start: 20241007, end: 20241202
  2. OXERVATE [Suspect]
     Active Substance: CENEGERMIN-BKBJ
     Route: 047
     Dates: start: 20250114
  3. OXERVATE [Suspect]
     Active Substance: CENEGERMIN-BKBJ
  4. OXERVATE [Suspect]
     Active Substance: CENEGERMIN-BKBJ
  5. OXERVATE [Suspect]
     Active Substance: CENEGERMIN-BKBJ
     Route: 047
  6. PROBIOTICS NOS [Concomitant]
     Active Substance: PROBIOTICS NOS
  7. VITAMIN A [Concomitant]
     Active Substance: VITAMIN A
  8. FISH OIL [Concomitant]
     Active Substance: FISH OIL
  9. ONE-A-DAY ESSENTIAL [Concomitant]
  10. METOPROLOL SUCCINATE [Concomitant]
     Active Substance: METOPROLOL SUCCINATE
  11. TEARS LUBRICANT [Concomitant]
     Active Substance: GLYCERIN\HYPROMELLOSES\POLYETHYLENE GLYCOL 400
  12. VITAMIN A AND D [Concomitant]
     Active Substance: LANOLIN\PETROLATUM
  13. RESTASIS [Concomitant]
     Active Substance: CYCLOSPORINE
  14. DIMETHYL SULFONE [Concomitant]
     Active Substance: DIMETHYL SULFONE
  15. ANASTROZOLE [Concomitant]
     Active Substance: ANASTROZOLE
  16. ZINC SULFATE [Concomitant]
     Active Substance: ZINC SULFATE
  17. LORATADINE [Concomitant]
     Active Substance: LORATADINE
  18. VITAMIN C [Concomitant]
     Active Substance: ASCORBIC ACID
  19. JARDIANCE [Concomitant]
     Active Substance: EMPAGLIFLOZIN
  20. ROSUVASTATIN CALCIUM [Concomitant]
     Active Substance: ROSUVASTATIN CALCIUM
  21. PYRIDOXINE HYDROCHLORIDE [Concomitant]
     Active Substance: PYRIDOXINE HYDROCHLORIDE
  22. GINKGO [Concomitant]
     Active Substance: GINKGO
  23. CYCLOSPORINE [Concomitant]
     Active Substance: CYCLOSPORINE
  24. VITAMIN D3 [Concomitant]
     Active Substance: CHOLECALCIFEROL
  25. ASPIRIN [Concomitant]
     Active Substance: ASPIRIN
  26. MYRBETRIQ [Concomitant]
     Active Substance: MIRABEGRON
  27. TESTOSTERONE CYPIONATE [Concomitant]
     Active Substance: TESTOSTERONE CYPIONATE
  28. NIACIN [Concomitant]
     Active Substance: NIACIN
  29. SPIRONOLACTONE [Concomitant]
     Active Substance: SPIRONOLACTONE
  30. CHONDROITIN SULFATE (BOVINE)\GLUCOSAMINE SULFATE [Concomitant]
     Active Substance: CHONDROITIN SULFATE (BOVINE)\GLUCOSAMINE SULFATE
  31. LEVOTHYROXINE SODIUM [Concomitant]
     Active Substance: LEVOTHYROXINE SODIUM
  32. FUROSEMIDE [Concomitant]
     Active Substance: FUROSEMIDE
  33. OXYBUTYNIN CHLORIDE [Concomitant]
     Active Substance: OXYBUTYNIN CHLORIDE
  34. PANTOPRAZOLE SODIUM [Concomitant]
     Active Substance: PANTOPRAZOLE SODIUM

REACTIONS (4)
  - Off label use [Unknown]
  - Eye pain [Recovering/Resolving]
  - Product administration error [Unknown]
  - Urinary tract infection [Unknown]
